FAERS Safety Report 24340725 (Version 2)
Quarter: 2024Q4

REPORT INFORMATION
  Report Type: Spontaneous
  Country: US (occurrence: US)
  Receive Date: 20240919
  Receipt Date: 20241010
  Transmission Date: 20250115
  Serious: No
  Sender: NOVARTIS
  Company Number: US-002147023-NVSC2024US187359

PATIENT
  Age: 69 Year
  Sex: Male
  Weight: 84 kg

DRUGS (1)
  1. LEQVIO [Suspect]
     Active Substance: INCLISIRAN SODIUM
     Indication: Product used for unknown indication
     Dosage: 284 MG, OTHER
     Route: 058
     Dates: start: 20231025, end: 20240909

REACTIONS (5)
  - Oropharyngeal pain [Recovering/Resolving]
  - Oral mucosal eruption [Recovered/Resolved]
  - Ear pain [Recovered/Resolved]
  - Pain of skin [Recovered/Resolved]
  - Pain [Recovered/Resolved]

NARRATIVE: CASE EVENT DATE: 20240909
